FAERS Safety Report 5162251-0 (Version None)
Quarter: 2006Q4

REPORT INFORMATION
  Report Type: 
  Country: None (occurrence: None)
  Receive Date: 20061121
  Receipt Date: 20061107
  Transmission Date: 20070319
  Serious: Yes (Hospitalization)
  Sender: FDA-Public Use
  Company Number: 2006VX002221

PATIENT
  Age: 54 Year
  Sex: Male
  Weight: 113.3993 kg

DRUGS (3)
  1. INTERFERON ALFACON-1 [Suspect]
     Indication: HEPATITIS C
     Dosage: 15 UG; QD; SC
     Route: 058
     Dates: start: 20060208, end: 20061030
  2. RIBAVIRIN [Concomitant]
  3. FIORICET [Concomitant]

REACTIONS (7)
  - DEEP VEIN THROMBOSIS [None]
  - FATIGUE [None]
  - HEADACHE [None]
  - INFLUENZA LIKE ILLNESS [None]
  - PNEUMONIA [None]
  - PULMONARY EMBOLISM [None]
  - PULMONARY MASS [None]
